FAERS Safety Report 6736775-6 (Version None)
Quarter: 2010Q2

REPORT INFORMATION
  Report Type: 
  Country: None (occurrence: None)
  Receive Date: 20100521
  Receipt Date: 20100510
  Transmission Date: 20101027
  Serious: Yes (Hospitalization)
  Sender: FDA-Public Use
  Company Number: US-ELI_LILLY_AND_COMPANY-US201004005161

PATIENT
  Sex: Female

DRUGS (3)
  1. CYMBALTA [Suspect]
     Indication: FIBROMYALGIA
     Dosage: 30 MG, DAILY (1/D)
     Dates: start: 20100301, end: 20100317
  2. SOMA [Concomitant]
  3. BUPROPION HCL [Concomitant]

REACTIONS (6)
  - ANXIETY [None]
  - CHEST PAIN [None]
  - HYPERTENSION [None]
  - LOSS OF CONSCIOUSNESS [None]
  - STRESS [None]
  - TACHYCARDIA [None]
